FAERS Safety Report 5041449-6 (Version None)
Quarter: 2006Q2

REPORT INFORMATION
  Report Type: 
  Country: None (occurrence: None)
  Receive Date: 20060627
  Receipt Date: 20060609
  Transmission Date: 20061013
  Serious: No
  Sender: FDA-Public Use
  Company Number: 060097

PATIENT
  Age: 79 Year
  Sex: Female
  Weight: 58.9676 kg

DRUGS (3)
  1. HALFLYTELY [Suspect]
     Indication: COLONOSCOPY
     Dosage: 20MG/2L, 1X, PO
     Route: 048
     Dates: start: 20060606
  2. SYNTHROID [Concomitant]
  3. NORVASC [Concomitant]

REACTIONS (3)
  - COLITIS ISCHAEMIC [None]
  - HAEMORRHOIDS [None]
  - POLYP [None]
